FAERS Safety Report 25865142 (Version 2)
Quarter: 2025Q4

REPORT INFORMATION
  Report Type: Spontaneous
  Country: IN (occurrence: IN)
  Receive Date: 20250930
  Receipt Date: 20251007
  Transmission Date: 20260118
  Serious: Yes (Other)
  Sender: EXELIXIS
  Company Number: IN-EXELIXIS-EXL-2025-011947

PATIENT
  Age: 56 Year
  Sex: Male

DRUGS (2)
  1. CABOMETYX [Suspect]
     Active Substance: CABOZANTINIB S-MALATE
     Indication: Renal cell carcinoma
     Dosage: UNK
  2. NIVOLUMAB [Suspect]
     Active Substance: NIVOLUMAB
     Indication: Renal cell carcinoma
     Dosage: UNK

REACTIONS (1)
  - Immune-mediated hypothyroidism [Unknown]

NARRATIVE: CASE EVENT DATE: 20230726
